FAERS Safety Report 10202633 (Version 1)
Quarter: 2014Q2

REPORT INFORMATION
  Report Type: Spontaneous
  Country: US (occurrence: US)
  Receive Date: 20140528
  Receipt Date: 20140528
  Transmission Date: 20141212
  Serious: No
  Sender: FDA-Public Use
  Company Number: US-BAYER-2014-078830

PATIENT
  Age: 70 Year
  Sex: Female
  Weight: 90.7 kg

DRUGS (5)
  1. ALEVE GELCAPS [Suspect]
     Indication: ARTHRALGIA
     Dosage: 2 DF, UNK
     Route: 048
     Dates: start: 20140522
  2. ALEVE CAPLET [Suspect]
     Indication: ARTHRALGIA
     Dosage: 1-2 DF, OTHER FREQUENCY
     Route: 048
     Dates: start: 2013
  3. ALEVE CAPLET [Suspect]
     Indication: ARTHRALGIA
     Dosage: 4-6 DF, UNK
     Route: 048
     Dates: start: 2013
  4. SYNTHROID [Concomitant]
  5. MELOXICAM [Concomitant]

REACTIONS (3)
  - Drug ineffective [None]
  - Incorrect drug administration duration [None]
  - Extra dose administered [None]
